FAERS Safety Report 17584738 (Version 2)
Quarter: 2020Q3

REPORT INFORMATION
  Report Type: Spontaneous
  Country: US (occurrence: US)
  Receive Date: 20200326
  Receipt Date: 20200910
  Transmission Date: 20201102
  Serious: Yes (Other)
  Sender: FDA-Public Use
  Company Number: US-GILEAD-2020-0456102

PATIENT
  Age: 64 Year
  Sex: Male
  Weight: 95 kg

DRUGS (80)
  1. HYDROXYZINE PAMOATE. [Concomitant]
     Active Substance: HYDROXYZINE PAMOATE
  2. ALUMINUM MAGNESIUM HYDROXIDE [Concomitant]
  3. NITROFURANTOIN. [Concomitant]
     Active Substance: NITROFURANTOIN
  4. PROMETHAZINE [Concomitant]
     Active Substance: PROMETHAZINE HYDROCHLORIDE
  5. TRUVADA [Suspect]
     Active Substance: EMTRICITABINE\TENOFOVIR DISOPROXIL FUMARATE
     Dosage: UNK
     Route: 048
     Dates: start: 20080102, end: 200802
  6. CIMETIDINE [Concomitant]
     Active Substance: CIMETIDINE
  7. MELOXICAM. [Concomitant]
     Active Substance: MELOXICAM
  8. SENNOSIDES. [Concomitant]
     Active Substance: SENNOSIDES
  9. TRUVADA [Suspect]
     Active Substance: EMTRICITABINE\TENOFOVIR DISOPROXIL FUMARATE
     Dosage: UNK
     Route: 048
     Dates: start: 20050729, end: 20080102
  10. DICLOFENAC [Concomitant]
     Active Substance: DICLOFENAC
  11. LISINOPRIL. [Concomitant]
     Active Substance: LISINOPRIL
  12. OXYCODONE [Concomitant]
     Active Substance: OXYCODONE
  13. PENICILLIN NOS [Concomitant]
     Active Substance: PENICILLIN
  14. QUETIAPINE FUMARATE. [Concomitant]
     Active Substance: QUETIAPINE FUMARATE
  15. RANITIDINE. [Concomitant]
     Active Substance: RANITIDINE
  16. TINACTIN [Concomitant]
     Active Substance: TOLNAFTATE
  17. AMITRIPTYLINE [Concomitant]
     Active Substance: AMITRIPTYLINE
  18. DAPSONE. [Concomitant]
     Active Substance: DAPSONE
  19. METFORMIN HCL [Concomitant]
     Active Substance: METFORMIN HYDROCHLORIDE
  20. TERAZOSIN HCL [Concomitant]
     Active Substance: TERAZOSIN HYDROCHLORIDE
  21. TRUVADA [Suspect]
     Active Substance: EMTRICITABINE\TENOFOVIR DISOPROXIL FUMARATE
     Dosage: UNK
     Route: 048
     Dates: start: 20050414, end: 20050729
  22. BIKTARVY [Concomitant]
     Active Substance: BICTEGRAVIR SODIUM\EMTRICITABINE\TENOFOVIR ALAFENAMIDE FUMARATE
     Indication: HIV INFECTION
  23. KALETRA [Concomitant]
     Active Substance: LOPINAVIR\RITONAVIR
  24. BACLOFEN. [Concomitant]
     Active Substance: BACLOFEN
     Indication: MUSCLE SPASMS
     Dosage: UNK
     Dates: start: 20120402, end: 20170501
  25. METFORMIN [Concomitant]
     Active Substance: METFORMIN HYDROCHLORIDE
  26. AMOXICILLIN. [Concomitant]
     Active Substance: AMOXICILLIN
  27. BENADRYL [Concomitant]
     Active Substance: DIPHENHYDRAMINE HYDROCHLORIDE
  28. FAMOTIDINE. [Concomitant]
     Active Substance: FAMOTIDINE
  29. NICOTINE. [Concomitant]
     Active Substance: NICOTINE
  30. NICOTINE TRANSDERMAL SYSTEM [Concomitant]
     Active Substance: NICOTINE
  31. TOUJEO [Concomitant]
     Active Substance: INSULIN GLARGINE
  32. VANCOCIN [Concomitant]
     Active Substance: VANCOMYCIN HYDROCHLORIDE
  33. COMBIVIR [Concomitant]
     Active Substance: LAMIVUDINE\ZIDOVUDINE
  34. IBUPROFEN. [Concomitant]
     Active Substance: IBUPROFEN
  35. OMEPRAZOLE. [Concomitant]
     Active Substance: OMEPRAZOLE
  36. TRAZODONE [Concomitant]
     Active Substance: TRAZODONE HYDROCHLORIDE
  37. ALBUTEROL [SALBUTAMOL] [Concomitant]
     Active Substance: ALBUTEROL
  38. DOCUSATE [Concomitant]
     Active Substance: DOCUSATE
  39. HYDROCODONE/ACETAMINOPHEN [Concomitant]
     Active Substance: ACETAMINOPHEN\HYDROCODONE
  40. MIRALAX [Concomitant]
     Active Substance: POLYETHYLENE GLYCOL 3350
  41. MIRTAZAPINE. [Concomitant]
     Active Substance: MIRTAZAPINE
  42. PSYLLIUM FIBRE [Concomitant]
     Active Substance: HERBALS\PLANTAGO OVATA SEED COAT
  43. RABEPRAZOLE [Concomitant]
     Active Substance: RABEPRAZOLE
  44. TESTOSTERONE. [Concomitant]
     Active Substance: TESTOSTERONE
  45. TYLENOL WITH CODEINE [Concomitant]
     Active Substance: ACETAMINOPHEN\CODEINE PHOSPHATE
  46. SUDAFED [Concomitant]
     Active Substance: PSEUDOEPHEDRINE HYDROCHLORIDE
  47. THIAMINE. [Concomitant]
     Active Substance: THIAMINE
  48. AMOXICILLIN CLAVULANIC ACID [Concomitant]
     Active Substance: AMOXICILLIN\CLAVULANIC ACID
  49. CYMBALTA [Concomitant]
     Active Substance: DULOXETINE HYDROCHLORIDE
  50. HYDROCORTISONE. [Concomitant]
     Active Substance: HYDROCORTISONE
  51. MUCINEX DM [Concomitant]
     Active Substance: DEXTROMETHORPHAN HYDROBROMIDE\GUAIFENESIN
  52. PERCOCET [OXYCODONE HYDROCHLORIDE;OXYCODONE TEREPHTHALATE;PARACETAMOL] [Concomitant]
     Active Substance: ACETAMINOPHEN\OXYCODONE HYDROCHLORIDE\OXYCODONE TEREPHTHALATE
  53. SUMATRIPTAN SUCCINATE. [Concomitant]
     Active Substance: SUMATRIPTAN SUCCINATE
  54. TRUVADA [Suspect]
     Active Substance: EMTRICITABINE\TENOFOVIR DISOPROXIL FUMARATE
     Indication: HIV INFECTION
     Dosage: UNK
     Route: 048
     Dates: start: 2004
  55. SUSTIVA [Concomitant]
     Active Substance: EFAVIRENZ
  56. GLIPIZIDE. [Concomitant]
     Active Substance: GLIPIZIDE
  57. TYLENOL [Concomitant]
     Active Substance: ACETAMINOPHEN
  58. CEPHALEXIN [CEFALEXIN] [Concomitant]
     Active Substance: CEPHALEXIN
  59. CLINDAMYCIN. [Concomitant]
     Active Substance: CLINDAMYCIN
  60. GABAPENTIN. [Concomitant]
     Active Substance: GABAPENTIN
  61. MUCINEX [Concomitant]
     Active Substance: GUAIFENESIN
  62. SIMETHICONE (DIMETHICONE) [Concomitant]
     Active Substance: DIMETHICONE
  63. ZUBSOLV [Concomitant]
     Active Substance: BUPRENORPHINE HYDROCHLORIDE\NALOXONE HYDROCHLORIDE
  64. ZYMAXID [Concomitant]
     Active Substance: GATIFLOXACIN
  65. TRUVADA [Suspect]
     Active Substance: EMTRICITABINE\TENOFOVIR DISOPROXIL FUMARATE
     Dosage: UNK
     Route: 048
     Dates: start: 20081001, end: 20170216
  66. DESCOVY [Concomitant]
     Active Substance: EMTRICITABINE\TENOFOVIR ALAFENAMIDE FUMARATE
  67. EPCLUSA [Concomitant]
     Active Substance: SOFOSBUVIR\VELPATASVIR
  68. CELEXA [Concomitant]
     Active Substance: CITALOPRAM HYDROBROMIDE
  69. ASPIRIN [ACETYLSALICYLIC ACID] [Concomitant]
     Active Substance: ASPIRIN
  70. AZITHROMYCIN ANHYDROUS. [Concomitant]
     Active Substance: AZITHROMYCIN ANHYDROUS
  71. BISACODYL. [Concomitant]
     Active Substance: BISACODYL
  72. CLARITIN [CLARITHROMYCIN] [Concomitant]
     Active Substance: CLARITHROMYCIN
  73. HYDROXYZINE HCL [Concomitant]
     Active Substance: HYDROXYZINE HYDROCHLORIDE
  74. LEVITRA [Concomitant]
     Active Substance: VARDENAFIL HYDROCHLORIDE
  75. MAGNESIUM CITRATE. [Concomitant]
     Active Substance: MAGNESIUM CITRATE
  76. NAPROXEN. [Concomitant]
     Active Substance: NAPROXEN
  77. PREDNISONE. [Concomitant]
     Active Substance: PREDNISONE
  78. RESTORIL [Concomitant]
     Active Substance: TEMAZEPAM
  79. TRAMADOL. [Concomitant]
     Active Substance: TRAMADOL
  80. VIAGRA [SILDENAFIL CITRATE] [Concomitant]

REACTIONS (12)
  - Anxiety [Not Recovered/Not Resolved]
  - Renal impairment [Recovered/Resolved]
  - Osteoporosis [Unknown]
  - Bone density decreased [Unknown]
  - Pain [Not Recovered/Not Resolved]
  - Acute kidney injury [Recovered/Resolved]
  - Economic problem [Unknown]
  - Anhedonia [Not Recovered/Not Resolved]
  - Emotional distress [Not Recovered/Not Resolved]
  - Blood creatinine increased [Unknown]
  - Joint injury [Unknown]
  - Osteopenia [Not Recovered/Not Resolved]

NARRATIVE: CASE EVENT DATE: 201207
